FAERS Safety Report 12809111 (Version 1)
Quarter: 2016Q4

REPORT INFORMATION
  Report Type: Spontaneous
  Country: US (occurrence: US)
  Receive Date: 20161004
  Receipt Date: 20161004
  Transmission Date: 20170207
  Serious: No
  Sender: FDA-Public Use
  Company Number: US-009507513-1609USA012798

PATIENT
  Age: 22 Year
  Sex: Female
  Weight: 95.69 kg

DRUGS (2)
  1. NEXPLANON [Suspect]
     Active Substance: ETONOGESTREL
     Dosage: 1 SINGLE ROD
     Route: 059
     Dates: start: 20160923
  2. NEXPLANON [Suspect]
     Active Substance: ETONOGESTREL
     Dosage: 1 SINGLE ROD
     Dates: start: 20160923, end: 20160923

REACTIONS (5)
  - Complication of device insertion [Recovered/Resolved]
  - Product quality issue [Unknown]
  - Device deployment issue [Recovered/Resolved]
  - Implant site fibrosis [Unknown]
  - No adverse event [Unknown]

NARRATIVE: CASE EVENT DATE: 20160923
